FAERS Safety Report 5877906-X (Version None)
Quarter: 2008Q3

REPORT INFORMATION
  Report Type: 
  Country: None (occurrence: None)
  Receive Date: 20080911
  Receipt Date: 20080905
  Transmission Date: 20090109
  Serious: Yes (Death, Hospitalization)
  Sender: FDA-Public Use
  Company Number: A0745013A

PATIENT
  Age: 81 Year
  Sex: Female
  Weight: 45 kg

DRUGS (8)
  1. SERETIDE [Suspect]
     Indication: BRONCHIECTASIS
     Dates: start: 20040101, end: 20080725
  2. PANTOPRAZOLE [Concomitant]
     Dates: start: 20060701, end: 20080725
  3. TRYPTANOL [Concomitant]
     Dates: start: 20060701, end: 20080725
  4. BLOPRESS [Concomitant]
     Dates: start: 20060701, end: 20080725
  5. SPORANOX [Concomitant]
     Dosage: 400MG PER DAY
     Dates: start: 20080101, end: 20080725
  6. BALCOR [Concomitant]
     Dates: start: 20060701, end: 20080725
  7. ALENDRONATE SODIUM [Concomitant]
     Indication: OSTEOPOROSIS
     Dates: start: 20040101, end: 20080401
  8. CALCIUM + VITAMIN D [Concomitant]
     Indication: OSTEOPOROSIS
     Dates: start: 20040101, end: 20080401

REACTIONS (5)
  - ABDOMINAL INFECTION [None]
  - FALL [None]
  - INTESTINAL OBSTRUCTION [None]
  - PELVIC FRACTURE [None]
  - SEPSIS [None]
